FAERS Safety Report 7041822-0 (Version None)
Quarter: 2010Q4

REPORT INFORMATION
  Report Type: 
  Country: None (occurrence: None)
  Receive Date: 20101013
  Receipt Date: 20101008
  Transmission Date: 20110411
  Serious: Yes (Death)
  Sender: FDA-Public Use
  Company Number: PHHY2010JP63332

PATIENT
  Sex: Female
  Weight: 49 kg

DRUGS (5)
  1. GLEEVEC [Suspect]
     Indication: ACUTE LYMPHOCYTIC LEUKAEMIA
     Dosage: 600 MG/DAY
     Route: 048
     Dates: start: 20091202, end: 20091208
  2. ONCOVIN [Suspect]
     Dosage: 1.8MG
     Route: 042
     Dates: start: 20091125, end: 20091209
  3. PREDONINE [Suspect]
     Indication: ACUTE LYMPHOCYTIC LEUKAEMIA
     Dosage: 90 MG
     Dates: start: 20091125, end: 20091208
  4. ORGARAN [Suspect]
     Indication: ACUTE LYMPHOCYTIC LEUKAEMIA
     Dosage: 2500 DF
     Route: 042
     Dates: start: 20091120, end: 20091209
  5. CHEMOTHERAPEUTICS NOS [Concomitant]
     Indication: ACUTE LYMPHOCYTIC LEUKAEMIA

REACTIONS (12)
  - ALTERED STATE OF CONSCIOUSNESS [None]
  - BACILLUS INFECTION [None]
  - BACTERIAL SEPSIS [None]
  - CHILLS [None]
  - COMA [None]
  - DIARRHOEA [None]
  - FEBRILE NEUTROPENIA [None]
  - MALAISE [None]
  - NAUSEA [None]
  - PYREXIA [None]
  - SUBARACHNOID HAEMORRHAGE [None]
  - VOMITING [None]
